FAERS Safety Report 16403944 (Version 3)
Quarter: 2019Q3

REPORT INFORMATION
  Report Type: Spontaneous
  Country: US (occurrence: US)
  Receive Date: 20190607
  Receipt Date: 20190731
  Transmission Date: 20191004
  Serious: Yes (Hospitalization)
  Sender: FDA-Public Use
  Company Number: PHEH2019US023357

PATIENT
  Sex: Female

DRUGS (2)
  1. TREPROSTINIL. [Suspect]
     Active Substance: TREPROSTINIL
     Indication: PULMONARY ARTERIAL HYPERTENSION
     Dosage: 22 NG/KG/MIN, CONTINUOUS
     Route: 042
     Dates: start: 20190529
  2. TREPROSTINIL. [Suspect]
     Active Substance: TREPROSTINIL
     Dosage: 28 NG/KG/MIN, CONTINUOUS
     Route: 042
     Dates: start: 20190614

REACTIONS (9)
  - Diarrhoea [Unknown]
  - Pain in jaw [Unknown]
  - Dysgeusia [Unknown]
  - Oedema [Unknown]
  - Headache [Unknown]
  - Pain in extremity [Unknown]
  - Weight increased [Unknown]
  - Nausea [Unknown]
  - Fatigue [Unknown]
